FAERS Safety Report 6906188-2 (Version None)
Quarter: 2010Q3

REPORT INFORMATION
  Report Type: 
  Country: None (occurrence: None)
  Receive Date: 20100804
  Receipt Date: 20100727
  Transmission Date: 20110219
  Serious: Yes (Hospitalization, Disabling, Other)
  Sender: FDA-Public Use
  Company Number: US-MERCK-0805USA00695

PATIENT
  Age: 73 Year
  Sex: Female
  Weight: 77 kg

DRUGS (4)
  1. FOSAMAX [Suspect]
     Indication: LOWER LIMB FRACTURE
     Route: 048
     Dates: start: 19961001, end: 20070401
  2. FOSAMAX [Suspect]
     Route: 048
     Dates: start: 19950101
  3. FOSAMAX [Suspect]
     Indication: OSTEOPENIA
     Route: 048
     Dates: start: 19961001, end: 20070401
  4. FOSAMAX [Suspect]
     Route: 048
     Dates: start: 19950101

REACTIONS (100)
  - ABSCESS [None]
  - ACTIVITIES OF DAILY LIVING IMPAIRED [None]
  - ADVERSE DRUG REACTION [None]
  - ADVERSE EVENT [None]
  - ANAEMIA [None]
  - ANAEMIA POSTOPERATIVE [None]
  - ANKLE FRACTURE [None]
  - ARTERIOSCLEROSIS [None]
  - ARTHRALGIA [None]
  - ASTHENIA [None]
  - ATRIAL FIBRILLATION [None]
  - BACK PAIN [None]
  - BLOOD ALBUMIN DECREASED [None]
  - BLOOD UREA INCREASED [None]
  - BONE DISORDER [None]
  - CARDIAC FAILURE CONGESTIVE [None]
  - CELLULITIS [None]
  - CHEST PAIN [None]
  - CHOKING [None]
  - CHOLECYSTITIS [None]
  - CHOLELITHIASIS [None]
  - CONTUSION [None]
  - DECUBITUS ULCER [None]
  - DEHYDRATION [None]
  - DELIRIUM [None]
  - DENTAL CARIES [None]
  - DEPRESSION [None]
  - DIASTOLIC DYSFUNCTION [None]
  - DIVERTICULITIS [None]
  - DIZZINESS [None]
  - DRUG DEPENDENCE [None]
  - DRUG HYPERSENSITIVITY [None]
  - DRUG INEFFECTIVE [None]
  - DYSLIPIDAEMIA [None]
  - DYSPEPSIA [None]
  - DYSPHAGIA [None]
  - DYSURIA [None]
  - ENDOMETRIAL CANCER [None]
  - FALL [None]
  - FOOT DEFORMITY [None]
  - FRACTURED SACRUM [None]
  - GAIT DISTURBANCE [None]
  - GASTROINTESTINAL SOUNDS ABNORMAL [None]
  - GASTROOESOPHAGEAL REFLUX DISEASE [None]
  - HEARING IMPAIRED [None]
  - HEART RATE IRREGULAR [None]
  - HERPES ZOSTER [None]
  - HYPERCHOLESTEROLAEMIA [None]
  - HYPERLIPIDAEMIA [None]
  - HYPERTENSION [None]
  - HYPOXIA [None]
  - INAPPROPRIATE SCHEDULE OF DRUG ADMINISTRATION [None]
  - INCONTINENCE [None]
  - INFLAMMATION [None]
  - INTERVERTEBRAL DISC DEGENERATION [None]
  - JAW FRACTURE [None]
  - JOINT DISLOCATION [None]
  - LIMB INJURY [None]
  - LIPID METABOLISM DISORDER [None]
  - MEMORY IMPAIRMENT [None]
  - NECK PAIN [None]
  - NERVOUS SYSTEM DISORDER [None]
  - OBESITY [None]
  - OEDEMA [None]
  - OROPHARYNGEAL PAIN [None]
  - OSTEOARTHRITIS [None]
  - OSTEODYSTROPHY [None]
  - OSTEOMYELITIS [None]
  - OSTEONECROSIS OF JAW [None]
  - OSTEOPOROSIS [None]
  - OVERDOSE [None]
  - PAIN [None]
  - PANIC ATTACK [None]
  - PELVIC FRACTURE [None]
  - PERIPHERAL VASCULAR DISORDER [None]
  - PHARYNGITIS [None]
  - PLEURISY [None]
  - PNEUMONIA [None]
  - PNEUMONIA BACTERIAL [None]
  - PUBIS FRACTURE [None]
  - PULSE PRESSURE DECREASED [None]
  - PYREXIA [None]
  - RED BLOOD CELL SEDIMENTATION RATE INCREASED [None]
  - RENAL FAILURE [None]
  - RESPIRATORY DISORDER [None]
  - ROTATOR CUFF SYNDROME [None]
  - SALIVARY GLAND ENLARGEMENT [None]
  - SJOGREN'S SYNDROME [None]
  - SKIN ULCER [None]
  - SPINAL COLUMN STENOSIS [None]
  - SPINAL OSTEOARTHRITIS [None]
  - SPONDYLOLISTHESIS [None]
  - SYNOVITIS [None]
  - TACHYCARDIA [None]
  - TEMPOROMANDIBULAR JOINT SYNDROME [None]
  - TIBIA FRACTURE [None]
  - UMBILICAL HERNIA [None]
  - UPPER AIRWAY OBSTRUCTION [None]
  - UTERINE CANCER [None]
  - VOMITING [None]
